FAERS Safety Report 17673833 (Version 2)
Quarter: 2020Q2

REPORT INFORMATION
  Report Type: Report from Study
  Country: None (occurrence: US)
  Receive Date: 20200415
  Receipt Date: 20200514
  Transmission Date: 20200714
  Serious: Yes (Other)
  Sender: FDA-Public Use
  Company Number: US-BIOVITRUM-2019US3837

PATIENT
  Age: 60 Year
  Sex: Female

DRUGS (1)
  1. KINERET [Suspect]
     Active Substance: ANAKINRA
     Indication: STILL^S DISEASE
     Route: 058
     Dates: start: 20190420

REACTIONS (9)
  - Arthralgia [Unknown]
  - Decreased appetite [Unknown]
  - Cardiac failure congestive [Unknown]
  - Sinusitis [Unknown]
  - Uveitis [Unknown]
  - Dyspnoea [Unknown]
  - Off label use [Not Recovered/Not Resolved]
  - Ear infection [Unknown]
  - Fatigue [Unknown]

NARRATIVE: CASE EVENT DATE: 20190420
